FAERS Safety Report 21820453 (Version 2)
Quarter: 2023Q1

REPORT INFORMATION
  Report Type: Other
  Country: US (occurrence: US)
  Receive Date: 20230105
  Receipt Date: 20230213
  Transmission Date: 20230418
  Serious: Yes (Hospitalization)
  Sender: FDA-Public Use
  Company Number: US-GBT-019128

PATIENT
  Age: 20 Year
  Sex: Male

DRUGS (1)
  1. OXBRYTA [Suspect]
     Active Substance: VOXELOTOR
     Indication: Sickle cell disease
     Route: 048
     Dates: start: 20200623

REACTIONS (3)
  - Haematoma [Unknown]
  - Sickle cell anaemia with crisis [Unknown]
  - Pain [Unknown]

NARRATIVE: CASE EVENT DATE: 20221210
